FAERS Safety Report 7974121-0 (Version None)
Quarter: 2011Q4

REPORT INFORMATION
  Report Type: 
  Country: None (occurrence: None)
  Receive Date: 20111213
  Receipt Date: 20111205
  Transmission Date: 20120403
  Serious: Yes (Other)
  Sender: FDA-Public Use
  Company Number: US-BAYER-2011-116681

PATIENT
  Age: 46 Year
  Sex: Female

DRUGS (3)
  1. DROSPIRENONE AND ETHINYL ESTRADIOL [Suspect]
     Dosage: UNK
     Dates: start: 20071001, end: 20100601
  2. YAZ [Suspect]
     Dosage: UNK
     Dates: start: 20071001, end: 20100601
  3. YASMIN [Suspect]
     Dosage: UNK
     Dates: start: 20071001, end: 20100601

REACTIONS (3)
  - INJURY [None]
  - PULMONARY EMBOLISM [None]
  - PAIN [None]
